FAERS Safety Report 9720941 (Version 3)
Quarter: 2013Q4

REPORT INFORMATION
  Report Type: Spontaneous
  Country: IT (occurrence: IT)
  Receive Date: 20131129
  Receipt Date: 20131226
  Transmission Date: 20140711
  Serious: Yes (Other)
  Sender: FDA-Public Use
  Company Number: IT-BRISTOL-MYERS SQUIBB COMPANY-19771575

PATIENT
  Age: 86 Year
  Sex: Female

DRUGS (6)
  1. COUMADIN TABS 5 MG [Suspect]
     Indication: ATRIAL FIBRILLATION
     Route: 048
     Dates: start: 20120529, end: 20131007
  2. LEVOFLOXACIN [Interacting]
     Indication: RENAL COLIC
     Route: 048
     Dates: start: 20131003, end: 20131007
  3. CONTRAMAL [Interacting]
     Indication: RENAL COLIC
     Dosage: 100 MG/2ML INJECTION SOLUTION
     Route: 030
     Dates: start: 20131003, end: 20131004
  4. VALSARTAN + HCTZ [Concomitant]
     Route: 048
  5. METFORMIN HCL [Concomitant]
     Route: 048
  6. RYTMONORM [Concomitant]
     Dosage: CAPS
     Route: 048

REACTIONS (2)
  - Drug interaction [Unknown]
  - International normalised ratio increased [Recovered/Resolved]
